FAERS Safety Report 8393185 (Version 2)
Quarter: 2013Q1

REPORT INFORMATION
  Report Type: Spontaneous
  Country: US (occurrence: US)
  Receive Date: 20120207
  Receipt Date: 20130123
  Transmission Date: 20140127
  Serious: Yes (Hospitalization, Other)
  Sender: FDA-Public Use
  Company Number: US-BRISTOL-MYERS SQUIBB COMPANY-16375917

PATIENT
  Sex: Female

DRUGS (2)
  1. COUMADIN [Suspect]
     Indication: PULMONARY THROMBOSIS
     Dosage: COUMADIN 3.0 TAKEN, DOSE NOT MENTIONED.
  2. DIOVAN [Concomitant]

REACTIONS (3)
  - Atrial fibrillation [Unknown]
  - Epistaxis [Unknown]
  - Sleep disorder [Unknown]
